FAERS Safety Report 5716349-6 (Version None)
Quarter: 2008Q2

REPORT INFORMATION
  Report Type: 
  Country: None (occurrence: None)
  Receive Date: 20080424
  Receipt Date: 20080422
  Transmission Date: 20081010
  Serious: Yes (Hospitalization, Other)
  Sender: FDA-Public Use
  Company Number: US-BRISTOL-MYERS SQUIBB COMPANY-14149975

PATIENT
  Age: 78 Year
  Sex: Female
  Weight: 85 kg

DRUGS (11)
  1. WARFARIN SODIUM [Suspect]
     Indication: CEREBROVASCULAR ACCIDENT
  2. WARFARIN SODIUM [Interacting]
     Indication: ARRHYTHMIA
  3. METRONIDAZOLE HCL [Interacting]
     Indication: UPPER RESPIRATORY TRACT INFECTION
  4. LEVOFLOXACIN [Interacting]
     Indication: UPPER RESPIRATORY TRACT INFECTION
  5. LEVOTHYROXINE SODIUM [Concomitant]
  6. CITALOPRAM HYDROBROMIDE [Concomitant]
  7. METOPROLOL TARTRATE [Concomitant]
  8. CLONIDINE [Concomitant]
  9. TEGASEROD MALEATE [Concomitant]
  10. POTASSIUM CHLORIDE [Concomitant]
  11. MONTELUKAST SODIUM [Concomitant]
     Dosage: AT BED TIME

REACTIONS (8)
  - ASTHENIA [None]
  - CEREBRAL HAEMORRHAGE [None]
  - DRUG INTERACTION [None]
  - EPISTAXIS [None]
  - FACIAL BONES FRACTURE [None]
  - HEADACHE [None]
  - INTERNATIONAL NORMALISED RATIO INCREASED [None]
  - UPPER RESPIRATORY TRACT INFECTION [None]
